FAERS Safety Report 9660291 (Version 3)
Quarter: 2013Q4

REPORT INFORMATION
  Report Type: Spontaneous
  Country: JP (occurrence: JP)
  Receive Date: 20131031
  Receipt Date: 20131219
  Transmission Date: 20140711
  Serious: Yes (Hospitalization)
  Sender: FDA-Public Use
  Company Number: JP-ELI_LILLY_AND_COMPANY-JP201310007533

PATIENT
  Age: 68 Year
  Sex: Female

DRUGS (8)
  1. FORTEO [Suspect]
     Indication: OSTEOPOROSIS
     Dosage: UNK
     Route: 058
     Dates: start: 20131019
  2. LYRICA [Concomitant]
  3. CELECOX [Concomitant]
  4. MUCOSTA [Concomitant]
  5. LEXAPRO [Concomitant]
  6. TETRAMIDE [Concomitant]
  7. GOODMIN [Concomitant]
  8. TRAMADOL HYDROCHLORIDE AND ACETAMINOPHEN [Concomitant]

REACTIONS (5)
  - Blood phosphorus decreased [Recovered/Resolved]
  - Blood calcium decreased [Recovered/Resolved]
  - Myoglobin blood increased [Recovered/Resolved]
  - Blood creatine phosphokinase increased [Recovered/Resolved]
  - Infection [Unknown]
